FAERS Safety Report 15191500 (Version 2)
Quarter: 2018Q4

REPORT INFORMATION
  Report Type: Report from Study
  Country: US (occurrence: US)
  Receive Date: 20180724
  Receipt Date: 20181015
  Transmission Date: 20190204
  Serious: No
  Sender: FDA-Public Use
  Company Number: US-AMGEN-USASL2018089291

PATIENT
  Age: 66 Year
  Sex: Male

DRUGS (2)
  1. KYPROLIS [Suspect]
     Active Substance: CARFILZOMIB
     Indication: PLASMA CELL MYELOMA
     Dosage: UNK, 2 TIMES/WK FOR 3 WEEKS THEN 1 WEEK OFF
     Route: 065
  2. KYPROLIS [Suspect]
     Active Substance: CARFILZOMIB
     Dosage: UNK, 2 TIMES/WK FOR 2 WEEKS THEN ONE WEEK OFF
     Route: 065

REACTIONS (11)
  - Off label use [Unknown]
  - Muscle spasms [Not Recovered/Not Resolved]
  - Malaise [Recovering/Resolving]
  - Dizziness [Unknown]
  - Fatigue [Unknown]
  - Blood creatinine increased [Recovered/Resolved]
  - Dyspnoea exertional [Not Recovered/Not Resolved]
  - Therapeutic response unexpected [Unknown]
  - Insomnia [Not Recovered/Not Resolved]
  - Nasopharyngitis [Recovering/Resolving]
  - Urine abnormality [Not Recovered/Not Resolved]

NARRATIVE: CASE EVENT DATE: 2018
